FAERS Safety Report 6112074-0 (Version None)
Quarter: 2009Q1

REPORT INFORMATION
  Report Type: 
  Country: None (occurrence: None)
  Receive Date: 20090311
  Receipt Date: 20090303
  Transmission Date: 20090719
  Serious: Yes (Disabling)
  Sender: FDA-Public Use
  Company Number: GB-PFIZER INC-2009178698

PATIENT

DRUGS (2)
  1. CELEBREX [Suspect]
     Indication: RHEUMATOID ARTHRITIS
     Route: 048
  2. PARACETAMOL [Suspect]
     Indication: HEADACHE

REACTIONS (3)
  - CONDITION AGGRAVATED [None]
  - DISSOCIATION [None]
  - NAUSEA [None]
